FAERS Safety Report 12142229 (Version 2)
Quarter: 2016Q1

REPORT INFORMATION
  Report Type: Spontaneous
  Country: JP (occurrence: JP)
  Receive Date: 20160303
  Receipt Date: 20160314
  Transmission Date: 20160526
  Serious: Yes (Life-Threatening, Hospitalization, Other)
  Sender: FDA-Public Use
  Company Number: JP-MEDTRONIC-1048646

PATIENT
  Age: 67 Year
  Sex: Male
  Weight: 55 kg

DRUGS (13)
  1. TRAMCET [Suspect]
     Active Substance: ACETAMINOPHEN\TRAMADOL
  2. DEPAS [Suspect]
     Active Substance: ETIZOLAM
  3. MICAMLO AP [Suspect]
     Active Substance: AMLODIPINE BESYLATE\TELMISARTAN
  4. BENZALIN [Suspect]
     Active Substance: NITRAZEPAM
  5. MELOXICAM. [Suspect]
     Active Substance: MELOXICAM
  6. LYRICA [Suspect]
     Active Substance: PREGABALIN
  7. AMUCARE INHALATION [Suspect]
     Active Substance: UNSPECIFIED INGREDIENT
  8. ADOAIR ASPIRATION [Suspect]
     Active Substance: FLUTICASONE PROPIONATE\SALMETEROL XINAFOATE
  9. MUCODYNE [Suspect]
     Active Substance: CARBOCYSTEINE
  10. NORSPAN [Suspect]
     Active Substance: BUPRENORPHINE
  11. GABALON [Suspect]
     Active Substance: BACLOFEN
     Route: 037
  12. SINGULAIR [Suspect]
     Active Substance: MONTELUKAST SODIUM
  13. BECLOMETHASONE DIPROPIONATE [Suspect]
     Active Substance: BECLOMETHASONE DIPROPIONATE

REACTIONS (38)
  - Chronic obstructive pulmonary disease [Unknown]
  - Sepsis [Not Recovered/Not Resolved]
  - Vomiting [Unknown]
  - Acute kidney injury [Unknown]
  - Insomnia [Unknown]
  - Inflammation [Unknown]
  - Haematocrit increased [Unknown]
  - Muscular weakness [None]
  - Neutrophil count increased [Unknown]
  - Blood potassium increased [Unknown]
  - Lymphocyte percentage decreased [Unknown]
  - Constipation [Unknown]
  - Renal impairment [Unknown]
  - Blood calcium decreased [Unknown]
  - Red blood cell count decreased [Unknown]
  - Blood sodium decreased [Unknown]
  - Haematocrit decreased [Unknown]
  - Amylase increased [Unknown]
  - Blood creatine phosphokinase MB increased [Unknown]
  - Blood creatinine increased [Unknown]
  - Blood magnesium increased [Unknown]
  - Protein total decreased [Unknown]
  - Irritability [Unknown]
  - Blood urea increased [Unknown]
  - Blood lactate dehydrogenase increased [Unknown]
  - Hypertension [None]
  - C-reactive protein increased [Unknown]
  - Listless [Unknown]
  - White blood cell count increased [Unknown]
  - Blood urea nitrogen/creatinine ratio increased [Unknown]
  - Lymphocyte count decreased [Unknown]
  - Blood potassium decreased [Unknown]
  - Neutrophil percentage increased [Unknown]
  - Pneumonia aspiration [Not Recovered/Not Resolved]
  - Hypertonia [Unknown]
  - Pneumonia [Unknown]
  - Condition aggravated [None]
  - Gastric disorder [Unknown]

NARRATIVE: CASE EVENT DATE: 20160216
